FAERS Safety Report 9700701 (Version 1)
Quarter: 2013Q4

REPORT INFORMATION
  Report Type: Report from Study
  Country: AR (occurrence: AR)
  Receive Date: 20131121
  Receipt Date: 20131121
  Transmission Date: 20140711
  Serious: Yes (Hospitalization)
  Sender: FDA-Public Use
  Company Number: PHHY2013AR132791

PATIENT
  Sex: Female

DRUGS (5)
  1. DIOVAN D [Suspect]
     Indication: CARDIAC FAILURE
     Dosage: 0.5 DF, A DAY
     Route: 048
  2. DIOVAN D [Suspect]
     Indication: OFF LABEL USE
  3. DIOVAN [Suspect]
     Indication: CARDIAC FAILURE
     Dosage: 160 MG, UNK
     Route: 048
  4. PROCORALAN [Concomitant]
     Indication: CARDIAC DISORDER
     Dosage: 5 MG, UNK
     Route: 048
  5. ANAGRELIDE [Concomitant]
     Dosage: UNK UKN, UNK

REACTIONS (3)
  - Oesophageal perforation [Recovering/Resolving]
  - Haemorrhage [Recovering/Resolving]
  - Choking [Recovering/Resolving]
